FAERS Safety Report 5809399-2 (Version None)
Quarter: 2008Q3

REPORT INFORMATION
  Report Type: 
  Country: None (occurrence: None)
  Receive Date: 20080714
  Receipt Date: 20080704
  Transmission Date: 20090109
  Serious: Yes (Death, Other)
  Sender: FDA-Public Use
  Company Number: JP-ABBOTT-08P-087-0453394-00

PATIENT
  Age: 74 Year
  Sex: Male

DRUGS (8)
  1. LEUPROLIDE ACETATE [Suspect]
     Indication: PROSTATE CANCER STAGE II
     Route: 058
     Dates: start: 20070219, end: 20070806
  2. LIMAPROST [Concomitant]
     Indication: LUMBAR SPINAL STENOSIS
     Dosage: 15 MCG PER DAY, 5 MCG 3 IN ONE DAY
     Route: 048
     Dates: end: 20070806
  3. ALOSENN [Concomitant]
     Indication: CONSTIPATION
     Route: 048
  4. ETODOLAC [Concomitant]
     Indication: SPINAL OSTEOARTHRITIS
     Dosage: 400 MG DAILY, 200 MG 2 IN ONE DAY
     Route: 048
  5. AMLODIPINE BESYLATE [Concomitant]
     Indication: HYPERTENSION
     Route: 048
     Dates: end: 20070905
  6. TEPRENONE [Concomitant]
     Indication: GASTRITIS
     Route: 048
     Dates: end: 20070905
  7. SENNA ALEXANDRINA LEAF [Concomitant]
     Indication: CONSTIPATION
     Route: 048
     Dates: start: 20070806, end: 20070905
  8. ETODOLAC [Concomitant]
     Route: 048
     Dates: start: 20070806, end: 20070905

REACTIONS (9)
  - ABDOMINAL PAIN [None]
  - BLOOD PRESSURE DECREASED [None]
  - GASTROINTESTINAL DISORDER [None]
  - INFREQUENT BOWEL MOVEMENTS [None]
  - LYMPHADENOPATHY [None]
  - LYMPHOMA [None]
  - NAUSEA [None]
  - OXYGEN SATURATION DECREASED [None]
  - SEPTIC SHOCK [None]
